FAERS Safety Report 5165151-5 (Version None)
Quarter: 2006Q4

REPORT INFORMATION
  Report Type: 
  Country: None (occurrence: None)
  Receive Date: 20061124
  Receipt Date: 20061109
  Transmission Date: 20070319
  Serious: Yes (Other)
  Sender: FDA-Public Use
  Company Number: ADE06044-L

PATIENT

DRUGS (6)
  1. ESMOLOL HCL [Suspect]
     Indication: HYPOTENSION
     Dosage: 500MG/KG INITIAL BOLUS INFUSION 0-300 UG/KG/MIN
  2. THIOPENTAL SODIUM [Concomitant]
  3. ISOFLURANE [Concomitant]
  4. FENTANYL [Concomitant]
  5. LACTATED RINGER'S [Concomitant]
  6. 6% HYDROXETHYL STARCH [Concomitant]

REACTIONS (3)
  - HYPOTENSION [None]
  - LABORATORY TEST ABNORMAL [None]
  - OPERATIVE HAEMORRHAGE [None]
